FAERS Safety Report 5268987-5 (Version None)
Quarter: 2007Q1

REPORT INFORMATION
  Report Type: 
  Country: None (occurrence: None)
  Receive Date: 20070319
  Receipt Date: 20070307
  Transmission Date: 20070707
  Serious: Yes (Hospitalization)
  Sender: FDA-Public Use
  Company Number: JP-JNJFOC-20070302280

PATIENT
  Age: 54 Year
  Sex: Female

DRUGS (5)
  1. MICONAZOLE [Suspect]
     Route: 048
  2. MICONAZOLE [Suspect]
     Indication: ORAL CANDIDIASIS
     Route: 048
  3. WARFARIN SODIUM [Suspect]
     Indication: DRUG USE FOR UNKNOWN INDICATION
     Route: 065
  4. ROSUVASTATIN CALCIUM [Suspect]
     Indication: HYPERLIPIDAEMIA
     Route: 065
  5. PRENISOLONE [Concomitant]
     Route: 065

REACTIONS (3)
  - DRUG INTERACTION [None]
  - MOUTH HAEMORRHAGE [None]
  - PETECHIAE [None]
